FAERS Safety Report 6426129-4 (Version None)
Quarter: 2009Q4

REPORT INFORMATION
  Report Type: 
  Country: None (occurrence: None)
  Receive Date: 20091103
  Receipt Date: 20091103
  Transmission Date: 20100525
  Serious: Yes (Hospitalization)
  Sender: FDA-Public Use
  Company Number: None

PATIENT
  Age: 55 Year
  Sex: Male
  Weight: 101 kg

DRUGS (6)
  1. DECADRON [Suspect]
     Indication: GLIOBLASTOMA
     Dosage: 2MG PO QD
     Route: 048
     Dates: start: 20090930, end: 20091030
  2. TEMOZOLOMIDE [Suspect]
     Indication: GLIOBLASTOMA
     Dosage: 200MG/M2 PO DAYS 1-5
     Route: 048
     Dates: start: 20091015, end: 20091019
  3. LISINOPRIL [Concomitant]
  4. KEPPRA [Concomitant]
  5. PEPCID [Concomitant]
  6. MEPRON [Concomitant]

REACTIONS (2)
  - HEADACHE [None]
  - HERPES ZOSTER OPHTHALMIC [None]
